FAERS Safety Report 14544896 (Version 1)
Quarter: 2018Q1

REPORT INFORMATION
  Report Type: Spontaneous
  Country: GB (occurrence: GB)
  Receive Date: 20180217
  Receipt Date: 20180217
  Transmission Date: 20180509
  Serious: Yes (Other)
  Sender: FDA-Public Use
  Company Number: GB-MYLANLABS-2018M1010041

PATIENT
  Age: 26 Year
  Sex: Female

DRUGS (4)
  1. CISPLATIN. [Suspect]
     Active Substance: CISPLATIN
     Dosage: 100 MG/M2, CYCLIC(THIRD CYCLE OF CISPLATIN CHEMOTHERAPY)
  2. CISPLATIN. [Suspect]
     Active Substance: CISPLATIN
     Dosage: 100 MG/M2, CYCLIC(FOURTH CYCLE)(10 DAYS AFTER DELIVERY)
  3. CISPLATIN. [Suspect]
     Active Substance: CISPLATIN
     Dosage: 100 MG/M2, CYCLIC (AT 25, 28, AND 31 WEEKS GESTATION)
  4. CISPLATIN. [Suspect]
     Active Substance: CISPLATIN
     Indication: CERVIX CARCINOMA STAGE II
     Dosage: 40 MG/M2, WEEKLY(TWO CYCLES)

REACTIONS (3)
  - Nausea [Unknown]
  - Ototoxicity [Unknown]
  - Fatigue [Unknown]
